FAERS Safety Report 16789572 (Version 1)
Quarter: 2019Q3

REPORT INFORMATION
  Report Type: Spontaneous
  Country: US (occurrence: US)
  Receive Date: 20190910
  Receipt Date: 20190910
  Transmission Date: 20191005
  Serious: No
  Sender: FDA-Public Use
  Company Number: US-GALDERMA-US19034013

PATIENT
  Age: 23 Year
  Sex: Female

DRUGS (1)
  1. EPIDUO FORTE [Suspect]
     Active Substance: ADAPALENE\BENZOYL PEROXIDE
     Indication: ACNE
     Dosage: 0.3%/2.5%
     Route: 061
     Dates: start: 20190509, end: 20190605

REACTIONS (7)
  - Drug ineffective [Not Recovered/Not Resolved]
  - Dermatitis [Recovering/Resolving]
  - Skin irritation [Recovering/Resolving]
  - Hypersensitivity [Recovering/Resolving]
  - Skin warm [Recovered/Resolved]
  - Erythema [Recovering/Resolving]
  - Skin burning sensation [Recovered/Resolved]

NARRATIVE: CASE EVENT DATE: 20190511
